FAERS Safety Report 13693923 (Version 1)
Quarter: 2017Q2

REPORT INFORMATION
  Report Type: Spontaneous
  Country: US (occurrence: US)
  Receive Date: 20170626
  Receipt Date: 20170626
  Transmission Date: 20170830
  Serious: No
  Sender: FDA-Public Use
  Company Number: None

PATIENT
  Sex: Female

DRUGS (1)
  1. BARE REPUBLIC MINERAL SPORT SUNS [Suspect]
     Active Substance: ZINC OXIDE
     Indication: PROPHYLAXIS AGAINST SOLAR RADIATION
     Dosage: ?          OTHER STRENGTH:SPF;OTHER FREQUENCY:EVERY 2 HOURS;?
     Route: 061
     Dates: start: 20170624, end: 20170624

REACTIONS (4)
  - Application site burn [None]
  - Application site pain [None]
  - Drug ineffective [None]
  - Impaired work ability [None]

NARRATIVE: CASE EVENT DATE: 20170624
